FAERS Safety Report 9386050 (Version 1)
Quarter: 2013Q3

REPORT INFORMATION
  Report Type: Spontaneous
  Country: DE (occurrence: DE)
  Receive Date: 20130705
  Receipt Date: 20130705
  Transmission Date: 20140515
  Serious: Yes (Other)
  Sender: FDA-Public Use
  Company Number: DE-ELI_LILLY_AND_COMPANY-DE201306008154

PATIENT
  Age: 73 Year
  Sex: Male

DRUGS (2)
  1. HUMINSULIN REGULAR [Suspect]
     Indication: DIABETES MELLITUS
     Dosage: UNK
     Route: 058
     Dates: start: 1993
  2. HUMAN INSULIN (RDNA ORIGIN) NPH [Suspect]
     Indication: DIABETES MELLITUS
     Dosage: UNK
     Route: 058
     Dates: start: 1993

REACTIONS (6)
  - Myocardial ischaemia [Unknown]
  - Fatigue [Unknown]
  - Nausea [Unknown]
  - Pollakiuria [Unknown]
  - Productive cough [Unknown]
  - Blood pressure increased [Unknown]
